FAERS Safety Report 4686090-X (Version None)
Quarter: 2005Q2

REPORT INFORMATION
  Report Type: 
  Country: None (occurrence: None)
  Receive Date: 20050609
  Receipt Date: 19950203
  Transmission Date: 20051028
  Serious: Yes (Other)
  Sender: FDA-Public Use
  Company Number: 199500396HAG

PATIENT
  Age: 75 Year
  Sex: Male

DRUGS (9)
  1. LASIX [Suspect]
     Indication: CARDIAC FAILURE CONGESTIVE
  2. CORDARONE [Suspect]
     Indication: ARRHYTHMIA
     Dates: start: 19920101, end: 19940727
  3. CAPOTEN [Suspect]
     Indication: CARDIAC FAILURE CONGESTIVE
  4. SODIUM BICARBONATE [Suspect]
  5. ZYLOPRIM [Suspect]
     Indication: GOUT
  6. ASPIRIN [Suspect]
  7. ISORDIL [Suspect]
     Indication: MYOCARDIAL ISCHAEMIA
  8. LANOXIN [Suspect]
     Indication: MYOCARDIAL ISCHAEMIA
  9. MIXTARD HUMAN 70/30 [Suspect]
     Indication: DIABETES MELLITUS
     Dosage: DOSE UNIT: UNITS

REACTIONS (2)
  - PULMONARY FIBROSIS [None]
  - PULMONARY OEDEMA [None]
